FAERS Safety Report 12941446 (Version 2)
Quarter: 2017Q3

REPORT INFORMATION
  Report Type: Spontaneous
  Country: US (occurrence: US)
  Receive Date: 20161115
  Receipt Date: 20170707
  Transmission Date: 20171127
  Serious: No
  Sender: FDA-Public Use
  Company Number: US-JNJFOC-20161103081

PATIENT
  Age: 53 Year
  Sex: Male

DRUGS (11)
  1. RISPERDAL [Suspect]
     Active Substance: RISPERIDONE
     Indication: HALLUCINATION, AUDITORY
     Dosage: VARYING DOSES OF 04-06 MG.
     Route: 048
     Dates: start: 2012, end: 2014
  2. RISPERIDONE. [Suspect]
     Active Substance: RISPERIDONE
     Indication: PRODUCT USED FOR UNKNOWN INDICATION
     Route: 048
  3. RISPERDAL [Suspect]
     Active Substance: RISPERIDONE
     Indication: PSYCHOTIC DISORDER
     Route: 048
     Dates: start: 2015, end: 201604
  4. INVEGA [Suspect]
     Active Substance: PALIPERIDONE
     Indication: PRODUCT USED FOR UNKNOWN INDICATION
     Route: 048
  5. RISPERIDONE. [Suspect]
     Active Substance: RISPERIDONE
     Indication: PRODUCT USED FOR UNKNOWN INDICATION
     Route: 048
  6. RISPERDAL [Suspect]
     Active Substance: RISPERIDONE
     Indication: AFFECTIVE DISORDER
     Dosage: VARYING DOSES OF 04-06 MG.
     Route: 048
     Dates: start: 2012, end: 2014
  7. RISPERDAL [Suspect]
     Active Substance: RISPERIDONE
     Indication: PSYCHOTIC DISORDER
     Dosage: VARYING DOSES OF 04-06 MG.
     Route: 048
     Dates: start: 2012, end: 2014
  8. RISPERDAL [Suspect]
     Active Substance: RISPERIDONE
     Indication: DEPRESSION
     Dosage: VARYING DOSES OF 04-06 MG.
     Route: 048
     Dates: start: 2012, end: 2014
  9. RISPERDAL [Suspect]
     Active Substance: RISPERIDONE
     Indication: AFFECTIVE DISORDER
     Route: 048
     Dates: start: 2015, end: 201604
  10. RISPERDAL [Suspect]
     Active Substance: RISPERIDONE
     Indication: HALLUCINATION, AUDITORY
     Route: 048
     Dates: start: 2015, end: 201604
  11. RISPERDAL [Suspect]
     Active Substance: RISPERIDONE
     Indication: DEPRESSION
     Route: 048
     Dates: start: 2015, end: 201604

REACTIONS (2)
  - Gynaecomastia [Unknown]
  - Insomnia [Unknown]

NARRATIVE: CASE EVENT DATE: 20140813
